FAERS Safety Report 7477515-5 (Version None)
Quarter: 2011Q2

REPORT INFORMATION
  Report Type: 
  Country: None (occurrence: None)
  Receive Date: 20110511
  Receipt Date: 20110511
  Transmission Date: 20111010
  Serious: Yes (Hospitalization)
  Sender: FDA-Public Use
  Company Number: None

PATIENT
  Age: 60 Year
  Sex: Female
  Weight: 77.1115 kg

DRUGS (2)
  1. ETODOLAC [Suspect]
     Indication: PAIN IN EXTREMITY
     Dosage: ONE TABLET 2 TIMES A DAY
     Dates: start: 20101103
  2. ETODOLAC [Suspect]
     Indication: PAIN IN EXTREMITY
     Dosage: ONE TABLET 2 TIMES A DAY
     Dates: start: 20101020

REACTIONS (7)
  - ASTHENIA [None]
  - CHEST PAIN [None]
  - SWELLING FACE [None]
  - CHEST DISCOMFORT [None]
  - DYSPNOEA [None]
  - ABASIA [None]
  - DYSSTASIA [None]
